APPROVED DRUG PRODUCT: OLANZAPINE
Active Ingredient: OLANZAPINE
Strength: 5MG
Dosage Form/Route: TABLET;ORAL
Application: A209399 | Product #002
Applicant: JIANGSU HANSOH PHARMACEUTICAL GROUP CO LTD
Approved: Sep 24, 2018 | RLD: No | RS: No | Type: DISCN